FAERS Safety Report 6479886-5 (Version None)
Quarter: 2009Q4

REPORT INFORMATION
  Report Type: 
  Country: None (occurrence: None)
  Receive Date: 20091208
  Receipt Date: 20091117
  Transmission Date: 20100525
  Serious: Yes (Other)
  Sender: FDA-Public Use
  Company Number: JP-SANOFI-AVENTIS-200913024JP

PATIENT
  Age: 52 Year
  Sex: Female

DRUGS (11)
  1. ARAVA [Suspect]
     Indication: RHEUMATOID ARTHRITIS
     Route: 048
     Dates: start: 20090702
  2. METHOTREXATE [Suspect]
     Indication: RHEUMATOID ARTHRITIS
     Route: 048
     Dates: end: 20091003
  3. METHOTREXATE [Suspect]
     Route: 048
     Dates: start: 20091017
  4. PREDNISOLONE [Concomitant]
     Indication: RHEUMATOID ARTHRITIS
     Route: 048
     Dates: end: 20090905
  5. PREDNISOLONE [Concomitant]
     Route: 048
     Dates: start: 20090906
  6. ROXATIDINE ACETATE HCL [Concomitant]
     Indication: GASTRITIS
     Route: 048
  7. ATORVASTATIN CALCIUM [Concomitant]
     Route: 048
  8. METHOTREXATE [Concomitant]
     Dosage: DOSE QUANTITY: 2.5
     Route: 048
     Dates: end: 20091003
  9. FOLIAMIN [Concomitant]
     Indication: FOLATE DEFICIENCY
     Route: 048
     Dates: end: 20090801
  10. FOLIAMIN [Concomitant]
     Route: 048
     Dates: start: 20090802
  11. AMARYL [Concomitant]
     Indication: DIABETES MELLITUS
     Route: 048

REACTIONS (4)
  - ALANINE AMINOTRANSFERASE INCREASED [None]
  - ASPARTATE AMINOTRANSFERASE INCREASED [None]
  - BLOOD LACTATE DEHYDROGENASE INCREASED [None]
  - GAMMA-GLUTAMYLTRANSFERASE INCREASED [None]
